FAERS Safety Report 8847199 (Version 3)
Quarter: 2013Q1

REPORT INFORMATION
  Report Type: Spontaneous
  Country: IT (occurrence: IT)
  Receive Date: 20121018
  Receipt Date: 20130226
  Transmission Date: 20140127
  Serious: No
  Sender: FDA-Public Use
  Company Number: IT-JNJFOC-20121004068

PATIENT
  Age: 6 Year
  Sex: Male
  Weight: 20 kg

DRUGS (6)
  1. DUROGESIC [Suspect]
     Indication: EPISTAXIS
     Route: 062
     Dates: start: 20121004, end: 20121004
  2. DUROGESIC [Suspect]
     Indication: HEADACHE
     Route: 062
     Dates: start: 20121004, end: 20121004
  3. DUROGESIC [Suspect]
     Indication: EYE INJURY
     Route: 062
     Dates: start: 20121004, end: 20121004
  4. DUROGESIC [Suspect]
     Indication: FACE INJURY
     Route: 062
     Dates: start: 20121004, end: 20121004
  5. DUROGESIC [Suspect]
     Indication: CRANIOCEREBRAL INJURY
     Route: 062
     Dates: start: 20121004, end: 20121004
  6. DUROGESIC [Suspect]
     Indication: ACCIDENTAL EXPOSURE TO PRODUCT
     Route: 062
     Dates: start: 20121004, end: 20121004

REACTIONS (3)
  - Diplopia [Recovered/Resolved]
  - Wrong technique in drug usage process [Unknown]
  - Accidental exposure to product [Unknown]
